FAERS Safety Report 6548093-X (Version None)
Quarter: 2010Q1

REPORT INFORMATION
  Report Type: 
  Country: None (occurrence: None)
  Receive Date: 20100124
  Receipt Date: 20091228
  Transmission Date: 20100710
  Serious: Yes (Hospitalization)
  Sender: FDA-Public Use
  Company Number: US-ALEXION-A200901125

PATIENT
  Sex: Female

DRUGS (2)
  1. SOLIRIS [Suspect]
     Indication: PAROXYSMAL NOCTURNAL HAEMOGLOBINURIA
     Dosage: 600 MG, WEEKLY FOR 4 WEEKS
     Route: 042
     Dates: start: 20090903, end: 20090901
  2. SOLIRIS [Suspect]
     Dosage: 900 MG, EVERY TWO WEEKS
     Route: 042
     Dates: start: 20090930

REACTIONS (6)
  - CEREBRAL HAEMORRHAGE [None]
  - DIZZINESS [None]
  - DYSPNOEA [None]
  - FALL [None]
  - PAIN [None]
  - RIB FRACTURE [None]
